FAERS Safety Report 7738057-2 (Version None)
Quarter: 2011Q3

REPORT INFORMATION
  Report Type: 
  Country: None (occurrence: None)
  Receive Date: 20110908
  Receipt Date: 20110831
  Transmission Date: 20111222
  Serious: Yes (Other)
  Sender: FDA-Public Use
  Company Number: US-ABBOTT-11P-163-0851103-00

PATIENT
  Sex: Female

DRUGS (2)
  1. VICODIN [Suspect]
     Indication: PRODUCT USED FOR UNKNOWN INDICATION
  2. BUTRANS [Suspect]
     Indication: PRODUCT USED FOR UNKNOWN INDICATION

REACTIONS (7)
  - ERYTHEMA [None]
  - DRUG HYPERSENSITIVITY [None]
  - ASTHMA [None]
  - LOCALISED OEDEMA [None]
  - COUGH [None]
  - WHEEZING [None]
  - APPLICATION SITE URTICARIA [None]
